FAERS Safety Report 4723557-X (Version None)
Quarter: 2005Q3

REPORT INFORMATION
  Report Type: 
  Country: None (occurrence: None)
  Receive Date: 20050725
  Receipt Date: 20050718
  Transmission Date: 20060218
  Serious: Yes (Other)
  Sender: FDA-Public Use
  Company Number: 200515849US

PATIENT
  Sex: Female
  Weight: 102.2 kg

DRUGS (5)
  1. LANTUS [Suspect]
     Indication: DIABETES MELLITUS
     Dosage: DOSE UNIT: UNITS
     Route: 058
  2. AVAPRO [Concomitant]
     Dosage: DOSE: UNK
  3. LIPITOR [Concomitant]
     Dosage: DOSE: UNK
  4. WELLBUTRIN [Concomitant]
     Dosage: DOSE: UNK
  5. NOVOLOG [Concomitant]
     Dosage: DOSE: 50-60 ; FREQUENCY: BEFORE MEALS; DOSE UNIT: UNITS

REACTIONS (6)
  - ANTI-INSULIN ANTIBODY POSITIVE [None]
  - ASTHENIA [None]
  - BLOOD GLUCOSE INCREASED [None]
  - DIFFICULTY IN WALKING [None]
  - HYPOAESTHESIA [None]
  - INSULIN RESISTANCE [None]
